FAERS Safety Report 4588308-0 (Version None)
Quarter: 2005Q1

REPORT INFORMATION
  Report Type: 
  Country: None (occurrence: None)
  Receive Date: 20050222
  Receipt Date: 20041203
  Transmission Date: 20050727
  Serious: Yes (Hospitalization)
  Sender: FDA-Public Use
  Company Number: JP-SOLVAY-00304004264

PATIENT
  Age: 21162 Day
  Sex: Female
  Weight: 42 kg

DRUGS (9)
  1. LORAZEPAM [Concomitant]
     Indication: DEPRESSION
     Dosage: DAILY DOSE: 1.5 MILLIGRAM(S)
     Route: 048
     Dates: start: 20010101
  2. DEPROMEL 25 [Suspect]
     Indication: DEPRESSION
     Dosage: DAILY DOSE: 150 MILLIGRAM(S)
     Route: 048
     Dates: start: 20010101, end: 20041118
  3. GASMOTIN [Concomitant]
     Indication: DEPRESSION
     Dosage: DAILY DOSE: 15 MILLIGRAM(S)
     Route: 048
     Dates: start: 20010101
  4. ZOMIG [Suspect]
     Indication: MIGRAINE
     Dosage: DAILY DOSE: 2.5 MILLIGRAM(S)
     Route: 048
     Dates: start: 20030101, end: 20041030
  5. DOGMATYL [Concomitant]
     Indication: DEPRESSION
     Dosage: DAILY DOSE: 150 MILLIGRAM(S)
     Route: 048
     Dates: start: 20010101
  6. HALCION [Concomitant]
     Indication: DEPRESSION
     Dosage: DAILY DOSE: .25 MILLIGRAM(S)
     Route: 048
     Dates: start: 20010101
  7. ROHYPNOL [Concomitant]
     Indication: DEPRESSION
     Dosage: DAILY DOSE: 2 MILLIGRAM(S)
     Route: 048
     Dates: start: 20010101
  8. TRYPTANOL [Concomitant]
     Indication: DEPRESSION
     Dosage: DAILY DOSE: 10 MILLIGRAM(S)
     Route: 048
     Dates: start: 20010101
  9. SOLANAX [Concomitant]
     Indication: DEPRESSION
     Dosage: DAILY DOSE: .8 MILLIGRAM(S)
     Route: 048
     Dates: start: 20010101

REACTIONS (1)
  - CEREBRAL HAEMORRHAGE [None]
